FAERS Safety Report 7247261-1 (Version None)
Quarter: 2011Q1

REPORT INFORMATION
  Report Type: 
  Country: None (occurrence: None)
  Receive Date: 20110127
  Receipt Date: 20110121
  Transmission Date: 20110831
  Serious: Yes (Death, Hospitalization)
  Sender: FDA-Public Use
  Company Number: A0795229A

PATIENT
  Age: 76 Year
  Sex: Female
  Weight: 89.5 kg

DRUGS (13)
  1. AVANDAMET [Suspect]
     Indication: DIABETES MELLITUS
     Route: 048
     Dates: start: 20041223, end: 20050101
  2. AVANDIA [Suspect]
     Dosage: 4MG PER DAY
     Route: 048
     Dates: start: 19990501, end: 20060305
  3. LEVOTHYROXINE SODIUM [Concomitant]
  4. ZANTAC [Concomitant]
  5. ZOCOR [Concomitant]
  6. ASPIRIN [Concomitant]
  7. HYDROCHLOROTHIAZIDE [Concomitant]
  8. LOPID [Concomitant]
  9. METFORMIN [Concomitant]
  10. OSCAL [Concomitant]
  11. ATENOLOL [Concomitant]
  12. GLYBURIDE [Concomitant]
  13. ZESTRIL [Concomitant]

REACTIONS (2)
  - CARDIAC FAILURE CONGESTIVE [None]
  - DEATH [None]
